FAERS Safety Report 18665520 (Version 2)
Quarter: 2021Q1

REPORT INFORMATION
  Report Type: Report from Study
  Country: None (occurrence: CO)
  Receive Date: 20201226
  Receipt Date: 20210125
  Transmission Date: 20210419
  Serious: Yes (Other)
  Sender: FDA-Public Use
  Company Number: CO-ABBVIE-20K-036-3706595-00

PATIENT
  Age: 45 Year
  Sex: Male
  Weight: 69 kg

DRUGS (2)
  1. HUMIRA [Suspect]
     Active Substance: ADALIMUMAB
     Indication: PSORIASIS
     Route: 058
     Dates: end: 20201113
  2. HUMIRA [Suspect]
     Active Substance: ADALIMUMAB
     Indication: PSORIASIS
     Route: 058
     Dates: start: 20150109

REACTIONS (8)
  - Anosmia [Recovered/Resolved]
  - Pyrexia [Recovering/Resolving]
  - Asphyxia [Recovered/Resolved]
  - Pain [Recovered/Resolved]
  - Ageusia [Recovered/Resolved]
  - Cough [Recovered/Resolved]
  - Suspected COVID-19 [Recovering/Resolving]
  - SARS-CoV-2 test positive [Recovered/Resolved]

NARRATIVE: CASE EVENT DATE: 202012
